FAERS Safety Report 6190270-4 (Version None)
Quarter: 2009Q2

REPORT INFORMATION
  Report Type: 
  Country: None (occurrence: None)
  Receive Date: 20090514
  Receipt Date: 20090504
  Transmission Date: 20091009
  Serious: Yes (Other)
  Sender: FDA-Public Use
  Company Number: HQWYE711010APR06

PATIENT
  Sex: Female

DRUGS (1)
  1. PREMARIN [Suspect]
     Indication: OESTROGEN REPLACEMENT THERAPY

REACTIONS (7)
  - ARTHROPATHY [None]
  - BREAST CANCER [None]
  - BREAST NEOPLASM [None]
  - CARDIAC DISORDER [None]
  - CEREBROVASCULAR ACCIDENT [None]
  - TRANSIENT ISCHAEMIC ATTACK [None]
  - VULVAL NEOPLASM [None]
